FAERS Safety Report 23657901 (Version 1)
Quarter: 2024Q1

REPORT INFORMATION
  Report Type: Spontaneous
  Country: PR (occurrence: None)
  Receive Date: 20240320
  Receipt Date: 20240320
  Transmission Date: 20240410
  Serious: Yes (Other)
  Sender: FDA-Public Use
  Company Number: None

PATIENT
  Age: 56 Year
  Sex: Female
  Weight: 75.6 kg

DRUGS (1)
  1. PIMECROLIMUS [Suspect]
     Active Substance: PIMECROLIMUS
     Indication: Granuloma annulare
     Dosage: OTHER QUANTITY : 1 OUNCE(S);?FREQUENCY : TWICE A DAY;?
     Route: 061
     Dates: start: 20240201, end: 20240204

REACTIONS (3)
  - Headache [None]
  - Muscular weakness [None]
  - Ear haemorrhage [None]

NARRATIVE: CASE EVENT DATE: 20240201
